FAERS Safety Report 15401423 (Version 8)
Quarter: 2019Q1

REPORT INFORMATION
  Report Type: Report from Study
  Country: CA (occurrence: CA)
  Receive Date: 20180919
  Receipt Date: 20190326
  Transmission Date: 20190417
  Serious: Yes (Death, Life-Threatening, Other)
  Sender: FDA-Public Use
  Company Number: PHHO2018CA010238

PATIENT
  Age: 63 Year
  Sex: Male
  Weight: 70 kg

DRUGS (4)
  1. METHYLPREDNISOLONE. [Suspect]
     Active Substance: METHYLPREDNISOLONE
     Indication: PRODUCT USED FOR UNKNOWN INDICATION
     Dosage: UNK
     Route: 065
  2. INC424 [Suspect]
     Active Substance: RUXOLITINIB
     Indication: ACUTE GRAFT VERSUS HOST DISEASE
     Dosage: UNK
     Route: 048
     Dates: start: 20180828
  3. MYCOPHENOLATE MOFETIL. [Suspect]
     Active Substance: MYCOPHENOLATE MOFETIL
     Indication: ACUTE GRAFT VERSUS HOST DISEASE
     Dosage: 1000 MG, BID
     Route: 042
     Dates: start: 20180822
  4. TACROLIMUS. [Suspect]
     Active Substance: TACROLIMUS
     Indication: PRODUCT USED FOR UNKNOWN INDICATION
     Dosage: UNK
     Route: 065

REACTIONS (4)
  - Acute respiratory distress syndrome [Not Recovered/Not Resolved]
  - Sepsis [Fatal]
  - Lung consolidation [Not Recovered/Not Resolved]
  - Multiple organ dysfunction syndrome [Fatal]

NARRATIVE: CASE EVENT DATE: 20180910
